FAERS Safety Report 17122148 (Version 3)
Quarter: 2023Q1

REPORT INFORMATION
  Report Type: Spontaneous
  Country: FR (occurrence: FR)
  Receive Date: 20191206
  Receipt Date: 20230320
  Transmission Date: 20230417
  Serious: Yes (Death, Life-Threatening, Hospitalization, Other)
  Sender: FDA-Public Use
  Company Number: FR-SA-2019SA121073

PATIENT
  Age: 61 Year
  Sex: Female
  Weight: 77 kg

DRUGS (3)
  1. IVABRADINE [Suspect]
     Active Substance: IVABRADINE
     Indication: Product used for unknown indication
     Dosage: UNK
     Route: 065
  2. ZOPICLONE [Concomitant]
     Active Substance: ZOPICLONE
     Indication: Product used for unknown indication
     Dosage: UNK
     Route: 065
  3. PREGABALIN [Concomitant]
     Active Substance: PREGABALIN
     Indication: Product used for unknown indication
     Dosage: UNK
     Route: 065

REACTIONS (15)
  - Completed suicide [Fatal]
  - Multiple organ dysfunction syndrome [Fatal]
  - Toxicity to various agents [Fatal]
  - Bradycardia [Fatal]
  - Cardiac failure [Fatal]
  - Poisoning [Fatal]
  - Somnolence [Fatal]
  - Hypotension [Fatal]
  - Intentional product use issue [Fatal]
  - Cardiac arrest [Recovered/Resolved]
  - Cardiac hypertrophy [Unknown]
  - Respiratory depression [Unknown]
  - Cardiomyopathy [Unknown]
  - Bundle branch block left [Unknown]
  - Intentional overdose [Unknown]

NARRATIVE: CASE EVENT DATE: 20190101
